FAERS Safety Report 5049333-9 (Version None)
Quarter: 2006Q3

REPORT INFORMATION
  Report Type: 
  Country: None (occurrence: None)
  Receive Date: 20060706
  Receipt Date: 20060621
  Transmission Date: 20061208
  Serious: Yes (Hospitalization, Other)
  Sender: FDA-Public Use
  Company Number: PAR_0686_2006

PATIENT
  Age: 28 Year
  Sex: Female

DRUGS (4)
  1. IBUPROFEN [Suspect]
     Indication: MIGRAINE
     Dosage: 400 MG PRN PO
     Route: 048
     Dates: start: 20040601, end: 20060501
  2. ANTALGIN [Suspect]
     Indication: MIGRAINE
     Dosage: 550 MG PRN PO
     Route: 048
     Dates: start: 20040601, end: 20060501
  3. TOPAMAX [Suspect]
     Indication: MIGRAINE
     Dosage: DF PO
     Route: 048
     Dates: start: 20060404, end: 20060504
  4. ALMOGRAN [Suspect]
     Indication: MIGRAINE
     Dosage: 25 MG QDAY
     Dates: start: 20060404, end: 20060504

REACTIONS (2)
  - AGRANULOCYTOSIS [None]
  - PYREXIA [None]
